FAERS Safety Report 6115066-0 (Version None)
Quarter: 2009Q1

REPORT INFORMATION
  Report Type: 
  Country: None (occurrence: None)
  Receive Date: 20090313
  Receipt Date: 20090310
  Transmission Date: 20090719
  Serious: Yes (Other)
  Sender: FDA-Public Use
  Company Number: B0560069A

PATIENT
  Age: 21 Year
  Sex: Male

DRUGS (2)
  1. RELENZA [Suspect]
     Indication: INFLUENZA
     Dosage: 10MG TWICE PER DAY
     Route: 055
     Dates: start: 20090209, end: 20090209
  2. CALONAL [Concomitant]
     Route: 065
     Dates: start: 20090209

REACTIONS (1)
  - LOSS OF CONSCIOUSNESS [None]
